FAERS Safety Report 7833439-2 (Version None)
Quarter: 2011Q4

REPORT INFORMATION
  Report Type: 
  Country: None (occurrence: None)
  Receive Date: 20111024
  Receipt Date: 20100623
  Transmission Date: 20120403
  Serious: No
  Sender: FDA-Public Use
  Company Number: US-BAYER-201026498NA

PATIENT

DRUGS (2)
  1. CIPROFLOXACIN [Suspect]
  2. LEVAQUIN [Suspect]

REACTIONS (2)
  - TENDON DISORDER [None]
  - PAIN IN EXTREMITY [None]
